FAERS Safety Report 24816239 (Version 1)
Quarter: 2025Q1

REPORT INFORMATION
  Report Type: Spontaneous
  Country: US (occurrence: None)
  Receive Date: 20250107
  Receipt Date: 20250107
  Transmission Date: 20250409
  Serious: Yes (Death)
  Sender: FDA-CTU
  Company Number: None

PATIENT
  Age: 70 Year

DRUGS (9)
  1. COLLAGENASE SANTYL [Suspect]
     Active Substance: COLLAGENASE CLOSTRIDIUM HISTOLYTICUM
     Dosage: FREQUENCY : DAILY;?
     Route: 061
  2. metoprolol ER 50mg [Concomitant]
     Dates: start: 20250107, end: 20250107
  3. ATORVASTATIN [Concomitant]
     Active Substance: ATORVASTATIN
     Dates: start: 20250107, end: 20250107
  4. LEVOTHYROXINE [Concomitant]
     Active Substance: LEVOTHYROXINE
     Dates: start: 20250107, end: 20250107
  5. AMIODARONE [Concomitant]
     Active Substance: AMIODARONE
     Dates: start: 20250107, end: 20250107
  6. Fenofibrate 160mg [Concomitant]
     Dates: start: 20250107, end: 20250107
  7. Glimperide 2mg [Concomitant]
     Dates: start: 20250107, end: 20250107
  8. CLOPIDOGREL [Concomitant]
     Active Substance: CLOPIDOGREL BISULFATE
     Dates: start: 20250107, end: 20250107
  9. LISINOPRIL [Concomitant]
     Active Substance: LISINOPRIL
     Dates: start: 20250107, end: 20250107

REACTIONS (1)
  - Death [None]

NARRATIVE: CASE EVENT DATE: 20250107
